FAERS Safety Report 9466607 (Version 1)
Quarter: 2013Q3

REPORT INFORMATION
  Report Type: Spontaneous
  Country: GB (occurrence: GB)
  Receive Date: 20130820
  Receipt Date: 20130820
  Transmission Date: 20140515
  Serious: Yes (Life-Threatening, Hospitalization)
  Sender: FDA-Public Use
  Company Number: PHHY2013GB087465

PATIENT
  Age: 51 Year
  Sex: Female
  Weight: 67 kg

DRUGS (2)
  1. CLONIDINE [Suspect]
     Dates: start: 20130730
  2. OMEPRAZOLE [Concomitant]
     Dates: start: 20130618, end: 20130802

REACTIONS (1)
  - Anaphylactic reaction [Recovered/Resolved]
